FAERS Safety Report 12918052 (Version 1)
Quarter: 2016Q4

REPORT INFORMATION
  Report Type: Spontaneous
  Country: US (occurrence: US)
  Receive Date: 20161107
  Receipt Date: 20161107
  Transmission Date: 20170207
  Serious: No
  Sender: FDA-Public Use
  Company Number: US-ALLERGAN-1660170US

PATIENT
  Sex: Male

DRUGS (1)
  1. RAPAFLO [Suspect]
     Active Substance: SILODOSIN
     Indication: URINARY RETENTION
     Dosage: 8 MG, QD
     Route: 048
     Dates: start: 201604, end: 201605

REACTIONS (3)
  - Off label use [Unknown]
  - Retrograde ejaculation [Recovered/Resolved]
  - Pollakiuria [Recovered/Resolved]
